FAERS Safety Report 14905318 (Version 1)
Quarter: 2018Q2

REPORT INFORMATION
  Report Type: Spontaneous
  Country: US (occurrence: US)
  Receive Date: 20180517
  Receipt Date: 20180517
  Transmission Date: 20180711
  Serious: Yes (Other)
  Sender: FDA-Public Use
  Company Number: US-SA-2017SA247295

PATIENT
  Age: 68 Year
  Sex: Male
  Weight: 104.33 kg

DRUGS (4)
  1. LISPRO [Concomitant]
     Active Substance: INSULIN LISPRO
  2. NOVOLOG [Concomitant]
     Active Substance: INSULIN ASPART
  3. LANTUS SOLOSTAR [Suspect]
     Active Substance: INSULIN GLARGINE
     Indication: TYPE 2 DIABETES MELLITUS
     Dosage: DOSE: 50-80 UNITS SLIDING SCALE
     Route: 051
     Dates: start: 19980101
  4. SOLOSTAR [Suspect]
     Active Substance: DEVICE
     Indication: TYPE 2 DIABETES MELLITUS
     Dates: start: 19980101

REACTIONS (4)
  - Hyperglycaemia [Unknown]
  - Amnesia [Unknown]
  - Product use issue [Unknown]
  - Muscle spasms [Not Recovered/Not Resolved]

NARRATIVE: CASE EVENT DATE: 19980101
